FAERS Safety Report 9716546 (Version 1)
Quarter: 2013Q4

REPORT INFORMATION
  Report Type: Spontaneous
  Country: US (occurrence: None)
  Receive Date: 20131126
  Receipt Date: 20131126
  Transmission Date: 20140711
  Serious: No
  Sender: FDA-Public Use
  Company Number: None

PATIENT
  Age: 34 Year
  Sex: Female
  Weight: 65.32 kg

DRUGS (1)
  1. COPPER IUD [Suspect]
     Indication: CONTRACEPTION

REACTIONS (2)
  - Device breakage [None]
  - Complication of device removal [None]
